FAERS Safety Report 6574002-3 (Version None)
Quarter: 2010Q1

REPORT INFORMATION
  Report Type: 
  Country: None (occurrence: None)
  Receive Date: 20100204
  Receipt Date: 20100204
  Transmission Date: 20100710
  Serious: Yes (Hospitalization)
  Sender: FDA-Public Use
  Company Number: None

PATIENT
  Sex: Female
  Weight: 62.6 kg

DRUGS (4)
  1. FLUOROURACIL [Suspect]
     Dosage: 17556 MG
     Dates: start: 20091229
  2. BEVACIZUMAB (RHUMAB VEGF) [Suspect]
     Dosage: 1300 MG
     Dates: start: 20091229
  3. LEUCOVORIN CALCIUM [Suspect]
     Dosage: 2508 MG
     Dates: start: 20091229
  4. ELOXATIN [Suspect]
     Dosage: 546 MG
     Dates: start: 20091229

REACTIONS (2)
  - ACUTE MYOCARDIAL INFARCTION [None]
  - ATRIAL FIBRILLATION [None]
